FAERS Safety Report 13177536 (Version 1)
Quarter: 2017Q1

REPORT INFORMATION
  Report Type: Report from Study
  Country: US (occurrence: US)
  Receive Date: 20170201
  Receipt Date: 20170201
  Transmission Date: 20170428
  Serious: No
  Sender: FDA-Public Use
  Company Number: US-EXELIXIS-CABO-16006428

PATIENT
  Age: 84 Year
  Sex: Male

DRUGS (1)
  1. COMETRIQ [Suspect]
     Active Substance: CABOZANTINIB S-MALATE
     Indication: METASTASES TO LIVER
     Dosage: 60 MG, QD
     Route: 048
     Dates: start: 201604, end: 201605

REACTIONS (5)
  - Pneumonia [Unknown]
  - Off label use [Unknown]
  - Swelling [Not Recovered/Not Resolved]
  - Balance disorder [Unknown]
  - Fall [Unknown]

NARRATIVE: CASE EVENT DATE: 201605
